FAERS Safety Report 5625060-1 (Version None)
Quarter: 2008Q1

REPORT INFORMATION
  Report Type: 
  Country: None (occurrence: None)
  Receive Date: 20080213
  Receipt Date: 20080201
  Transmission Date: 20080703
  Serious: Yes (Other)
  Sender: FDA-Public Use
  Company Number: BE-PFIZER INC-2008006540

PATIENT
  Sex: Female
  Weight: 65 kg

DRUGS (1)
  1. CHANTIX [Suspect]
     Indication: SMOKING CESSATION THERAPY
     Dates: start: 20080113, end: 20080122

REACTIONS (3)
  - FACE OEDEMA [None]
  - MUSCULOSKELETAL STIFFNESS [None]
  - NECK PAIN [None]
